FAERS Safety Report 10136488 (Version 1)
Quarter: 2014Q2

REPORT INFORMATION
  Report Type: Spontaneous
  Country: US (occurrence: None)
  Receive Date: 20140428
  Receipt Date: 20140428
  Transmission Date: 20141212
  Serious: Yes (Hospitalization)
  Sender: FDA-Public Use
  Company Number: None

PATIENT
  Age: 15 Year
  Sex: Male

DRUGS (1)
  1. OMNITROPE 10MG/1.5ML CARTRIDGE [Suspect]
     Indication: BODY HEIGHT BELOW NORMAL
     Dosage: INJECT SUBCUTANEOUSLY 1.9 MG 6 DAYS PER WEEK
     Dates: start: 20120423

REACTIONS (1)
  - Ventricular tachycardia [None]
